FAERS Safety Report 4353188-5 (Version None)
Quarter: 2004Q2

REPORT INFORMATION
  Report Type: 
  Country: None (occurrence: None)
  Receive Date: 20040503
  Receipt Date: 20040503
  Transmission Date: 20050107
  Serious: Yes (Hospitalization)
  Sender: FDA-Public Use
  Company Number: None

PATIENT
  Age: 66 Year
  Sex: Male

DRUGS (11)
  1. LISINOPRIL [Suspect]
     Dosage: 20 MG QD
     Dates: start: 20010701, end: 20040101
  2. ASA [Concomitant]
  3. BENADRYL [Concomitant]
  4. FERROUS GLUCONATE [Concomitant]
  5. OMEPRAZOLE [Concomitant]
  6. LASIX [Concomitant]
  7. INSULIN [Concomitant]
  8. ISOSORBIDE [Concomitant]
  9. TRAZODONE HCL [Concomitant]
  10. LEVOFLOXACIN [Concomitant]
  11. GLIPIZIDE [Concomitant]

REACTIONS (3)
  - ANGIONEUROTIC OEDEMA [None]
  - FLUID OVERLOAD [None]
  - RESPIRATORY DEPRESSION [None]
